FAERS Safety Report 9392758 (Version 1)
Quarter: 2013Q3

REPORT INFORMATION
  Report Type: Spontaneous
  Country: US (occurrence: US)
  Receive Date: 20130710
  Receipt Date: 20130710
  Transmission Date: 20140515
  Serious: Yes (Other)
  Sender: FDA-Public Use
  Company Number: US-JNJFOC-20130700925

PATIENT
  Age: 57 Year
  Sex: Male
  Weight: 104.33 kg

DRUGS (15)
  1. REMICADE [Suspect]
     Indication: PSORIATIC ARTHROPATHY
     Route: 042
     Dates: start: 2013
  2. KLOR-CON [Concomitant]
     Indication: BLOOD POTASSIUM
     Route: 048
     Dates: start: 2010
  3. LASIX [Concomitant]
     Indication: OEDEMA
     Route: 048
     Dates: start: 2005
  4. ASPIRIN [Concomitant]
     Indication: PROPHYLAXIS
     Route: 048
     Dates: start: 2005
  5. SULINDAC [Concomitant]
     Indication: ARTHRITIS
     Route: 065
     Dates: start: 2010
  6. ZOLOFT [Concomitant]
     Indication: MEMORY IMPAIRMENT
     Dosage: 100MG/TABLET
     Route: 048
     Dates: start: 2011
  7. COLCRYS [Concomitant]
     Indication: ARTHRITIS
     Route: 048
     Dates: start: 2009
  8. SIMVASTATIN [Concomitant]
     Indication: BLOOD CHOLESTEROL
     Route: 048
     Dates: start: 2005
  9. ALLOPURINOL [Concomitant]
     Indication: ARTHRITIS
     Route: 048
     Dates: start: 2008
  10. METHOTREXATE [Concomitant]
     Indication: ARTHRITIS
     Dosage: 2.5MG/8TABLETS
     Route: 048
     Dates: start: 2007
  11. LEFLUNOMIDE [Concomitant]
     Indication: ARTHRITIS
     Route: 048
     Dates: start: 201306
  12. LEVOTHYROXINE [Concomitant]
     Indication: THYROID DISORDER
     Route: 048
     Dates: start: 2007
  13. ARICEPT [Concomitant]
     Indication: MEMORY IMPAIRMENT
     Route: 048
     Dates: start: 2011
  14. AMBIEN [Concomitant]
     Indication: SLEEP DISORDER
     Route: 048
     Dates: start: 2006
  15. MULTIVITAMIN [Concomitant]
     Indication: VITAMIN SUPPLEMENTATION
     Route: 048
     Dates: start: 2006

REACTIONS (1)
  - Sexual dysfunction [Not Recovered/Not Resolved]
